FAERS Safety Report 16714186 (Version 2)
Quarter: 2019Q3

REPORT INFORMATION
  Report Type: Spontaneous
  Country: BR (occurrence: BR)
  Receive Date: 20190819
  Receipt Date: 20190822
  Transmission Date: 20191004
  Serious: No
  Sender: FDA-Public Use
  Company Number: BR-B.I. PHARMACEUTICALS,INC./RIDGEFIELD-2019-BI-033362

PATIENT
  Age: 48 Year
  Sex: Male
  Weight: 84 kg

DRUGS (4)
  1. MICARDIS [Suspect]
     Active Substance: TELMISARTAN
     Indication: HYPERTENSION
     Dosage: 80/5 MILLIGRAM
     Route: 048
     Dates: end: 20190810
  2. MICARDIS [Suspect]
     Active Substance: TELMISARTAN
     Dosage: 80/5 MILLIGRAM
     Route: 048
     Dates: start: 20190811
  3. ESOMEPRAZOL [Concomitant]
     Active Substance: ESOMEPRAZOLE
     Indication: GASTRITIS
     Route: 048
     Dates: start: 201906
  4. MOTILIUM [Concomitant]
     Active Substance: DOMPERIDONE
     Indication: GASTRITIS
     Route: 048
     Dates: start: 201906

REACTIONS (5)
  - Hypertension [Recovered/Resolved]
  - Migraine [Recovered/Resolved]
  - Drug ineffective [Recovered/Resolved]
  - Product quality issue [Unknown]
  - Hypertension [Recovered/Resolved]

NARRATIVE: CASE EVENT DATE: 20190806
